FAERS Safety Report 11174418 (Version 1)
Quarter: 2015Q2

REPORT INFORMATION
  Report Type: Report from Study
  Country: DE (occurrence: DE)
  Receive Date: 20150609
  Receipt Date: 20150609
  Transmission Date: 20150821
  Serious: Yes (Hospitalization)
  Sender: FDA-Public Use
  Company Number: DE-ABBVIE-15P-062-1400933-00

PATIENT
  Sex: Female

DRUGS (1)
  1. DUODOPA [Suspect]
     Active Substance: CARBIDOPA\LEVODOPA
     Indication: PARKINSON^S DISEASE
     Dosage: MD: 7.7ML; CRD: 2.7ML/H; ED: 1.0ML
     Route: 050
     Dates: start: 20140425

REACTIONS (2)
  - Dyskinesia [Not Recovered/Not Resolved]
  - Restlessness [Not Recovered/Not Resolved]
